FAERS Safety Report 6310888-5 (Version None)
Quarter: 2009Q3

REPORT INFORMATION
  Report Type: 
  Country: None (occurrence: None)
  Receive Date: 20090812
  Receipt Date: 20090729
  Transmission Date: 20100115
  Serious: No
  Sender: FDA-Public Use
  Company Number: 2009-1500

PATIENT
  Age: 63 Year
  Sex: Male

DRUGS (1)
  1. SOMATULINE AUTOSOLUTION 90MG (LANREOTIDE) (LANREOTIDE ACETATE) [Suspect]
     Dosage: (90 MG, 1 IN 4 WK)
     Dates: start: 20041101, end: 20070215

REACTIONS (2)
  - FIBROSIS [None]
  - INJECTION SITE NODULE [None]
